FAERS Safety Report 11860569 (Version 2)
Quarter: 2017Q1

REPORT INFORMATION
  Report Type: Spontaneous
  Country: US (occurrence: US)
  Receive Date: 20151222
  Receipt Date: 20170222
  Transmission Date: 20170428
  Serious: Yes (Other)
  Sender: FDA-Public Use
  Company Number: US-ELI_LILLY_AND_COMPANY-US201512006197

PATIENT
  Sex: Male
  Weight: 84.81 kg

DRUGS (6)
  1. CYMBALTA [Suspect]
     Active Substance: DULOXETINE HYDROCHLORIDE
     Indication: PRODUCT USED FOR UNKNOWN INDICATION
     Dosage: UNK, UNKNOWN
     Route: 048
     Dates: start: 20110517, end: 20150217
  2. GABAPENTIN. [Concomitant]
     Active Substance: GABAPENTIN
     Indication: POST LAMINECTOMY SYNDROME
     Dosage: 300 MG, TID
     Route: 048
  3. VALIUM [Concomitant]
     Active Substance: DIAZEPAM
     Indication: ANXIETY
     Dosage: 5 MG, TID
     Route: 065
  4. GABAPENTIN. [Concomitant]
     Active Substance: GABAPENTIN
     Dosage: 600 MG, TID
     Route: 048
  5. TIZANIDINE. [Concomitant]
     Active Substance: TIZANIDINE
     Indication: POST LAMINECTOMY SYNDROME
     Dosage: 2 MG, EVERY 8 HRS
     Route: 048
  6. PERCOCET [Concomitant]
     Active Substance: ACETAMINOPHEN\OXYCODONE HYDROCHLORIDE
     Dosage: 1 DF, EVERY 8 HRS
     Route: 048

REACTIONS (19)
  - Sensory disturbance [Unknown]
  - Insomnia [Unknown]
  - Hyperhidrosis [Unknown]
  - Seizure [Unknown]
  - Irritability [Unknown]
  - Off label use [Unknown]
  - Suicidal ideation [Unknown]
  - Dizziness [Unknown]
  - Drug withdrawal syndrome [Unknown]
  - Headache [Unknown]
  - Diarrhoea [Unknown]
  - Nausea [Unknown]
  - Nightmare [Unknown]
  - Fatigue [Unknown]
  - Vomiting [Unknown]
  - Dysphoria [Unknown]
  - Paraesthesia [Unknown]
  - Anxiety [Unknown]
  - Vertigo [Unknown]
